FAERS Safety Report 5003894-4 (Version None)
Quarter: 2006Q2

REPORT INFORMATION
  Report Type: 
  Country: None (occurrence: None)
  Receive Date: 20060515
  Receipt Date: 20060502
  Transmission Date: 20061013
  Serious: Yes (Hospitalization)
  Sender: FDA-Public Use
  Company Number: GXKR2006GB02478

PATIENT
  Age: 66 Year
  Sex: Female

DRUGS (4)
  1. DOXYCYCLINE [Suspect]
     Indication: MEIBOMIANITIS
     Dosage: 100 MG, ORAL
     Route: 048
     Dates: start: 20060324, end: 20060418
  2. DICLOFENAC POTASSIUM [Concomitant]
  3. PIRITON (CHLORPHENAMINE MALEATE) [Concomitant]
  4. NYSTATIN [Concomitant]

REACTIONS (4)
  - DYSPHAGIA [None]
  - OEDEMA PERIPHERAL [None]
  - PETECHIAE [None]
  - SWOLLEN TONGUE [None]
